FAERS Safety Report 9619945 (Version 2)
Quarter: 2013Q4

REPORT INFORMATION
  Report Type: Spontaneous
  Country: US (occurrence: US)
  Receive Date: 20131014
  Receipt Date: 20131024
  Transmission Date: 20140711
  Serious: No
  Sender: FDA-Public Use
  Company Number: US-PFIZER INC-2013292671

PATIENT
  Age: 59 Year
  Sex: Female

DRUGS (1)
  1. LYRICA [Suspect]
     Indication: FIBROMYALGIA
     Dosage: UNK
     Dates: start: 201212, end: 201301

REACTIONS (4)
  - Lip swelling [Recovered/Resolved]
  - Gingival swelling [Recovered/Resolved]
  - Swollen tongue [Recovered/Resolved]
  - Dysarthria [Recovered/Resolved]
